FAERS Safety Report 20110639 (Version 3)
Quarter: 2022Q3

REPORT INFORMATION
  Report Type: Spontaneous
  Country: JP (occurrence: JP)
  Receive Date: 20211124
  Receipt Date: 20220817
  Transmission Date: 20221026
  Serious: Yes (Hospitalization)
  Sender: FDA-Public Use
  Company Number: JP-ELI_LILLY_AND_COMPANY-JP202006012368

PATIENT
  Age: 12 Month
  Sex: Female
  Weight: 8 kg

DRUGS (50)
  1. ADCIRCA [Suspect]
     Active Substance: TADALAFIL
     Indication: Pulmonary arterial hypertension
     Dosage: UNK UNK, UNKNOWN
     Route: 065
     Dates: end: 20200116
  2. ADCIRCA [Suspect]
     Active Substance: TADALAFIL
     Dosage: UNK UNK, UNKNOWN
     Route: 065
     Dates: start: 20200117, end: 20210121
  3. ADCIRCA [Suspect]
     Active Substance: TADALAFIL
     Dosage: UNK UNK, UNKNOWN
     Route: 065
     Dates: start: 20210122
  4. UPTRAVI [Suspect]
     Active Substance: SELEXIPAG
     Indication: Pulmonary arterial hypertension
     Dosage: 0.03 MG, BID
     Route: 048
     Dates: start: 20181231, end: 20190107
  5. UPTRAVI [Suspect]
     Active Substance: SELEXIPAG
     Dosage: 0.059 MG, BID
     Route: 048
     Dates: start: 20190108, end: 20190114
  6. UPTRAVI [Suspect]
     Active Substance: SELEXIPAG
     Dosage: 0.09 MG, BID
     Route: 048
     Dates: start: 20190115, end: 20190121
  7. UPTRAVI [Suspect]
     Active Substance: SELEXIPAG
     Dosage: 0.12 MG, BID
     Route: 048
     Dates: start: 20190122, end: 20190128
  8. UPTRAVI [Suspect]
     Active Substance: SELEXIPAG
     Dosage: 0.15 MG, BID
     Route: 048
     Dates: start: 20190129, end: 20190204
  9. UPTRAVI [Suspect]
     Active Substance: SELEXIPAG
     Dosage: 0.18 MG, BID
     Route: 048
     Dates: start: 20190205, end: 20190211
  10. UPTRAVI [Suspect]
     Active Substance: SELEXIPAG
     Dosage: 0.21 MG, BID
     Route: 048
     Dates: start: 20190212, end: 20190218
  11. UPTRAVI [Suspect]
     Active Substance: SELEXIPAG
     Dosage: 0.24 MG, BID
     Route: 048
     Dates: start: 20190219, end: 20190225
  12. UPTRAVI [Suspect]
     Active Substance: SELEXIPAG
     Dosage: 0.272 MG, BID
     Route: 048
     Dates: start: 20190226, end: 20190304
  13. UPTRAVI [Suspect]
     Active Substance: SELEXIPAG
     Dosage: 0.285 MG, BID
     Route: 048
     Dates: start: 20190305, end: 20190328
  14. UPTRAVI [Suspect]
     Active Substance: SELEXIPAG
     Dosage: 0.295 MG, BID
     Route: 048
     Dates: start: 20190329, end: 20190418
  15. UPTRAVI [Suspect]
     Active Substance: SELEXIPAG
     Dosage: 0.27 MG, BID
     Route: 048
     Dates: start: 20190419, end: 20190516
  16. UPTRAVI [Suspect]
     Active Substance: SELEXIPAG
     Dosage: 0.304 MG, BID
     Route: 048
     Dates: start: 20190517, end: 20190718
  17. UPTRAVI [Suspect]
     Active Substance: SELEXIPAG
     Dosage: 32 MG, BID
     Route: 048
     Dates: start: 20190719, end: 20200116
  18. UPTRAVI [Suspect]
     Active Substance: SELEXIPAG
     Dosage: 0.35 MG, BID
     Route: 048
     Dates: start: 20200117, end: 20200521
  19. UPTRAVI [Suspect]
     Active Substance: SELEXIPAG
     Dosage: 0.38 MG, BID
     Route: 048
     Dates: start: 20200522, end: 20200820
  20. UPTRAVI [Suspect]
     Active Substance: SELEXIPAG
     Dosage: 0.425 MG, BID
     Route: 048
     Dates: start: 20200821, end: 20201015
  21. UPTRAVI [Suspect]
     Active Substance: SELEXIPAG
     Dosage: 0.445 MG, BID
     Route: 048
     Dates: start: 20201016, end: 20210121
  22. UPTRAVI [Suspect]
     Active Substance: SELEXIPAG
     Dosage: 0.48 MG, BID
     Route: 048
     Dates: start: 20210122, end: 20210318
  23. UPTRAVI [Suspect]
     Active Substance: SELEXIPAG
     Dosage: 0.51 MG, BID
     Route: 048
     Dates: start: 20210319
  24. OPSUMIT [Concomitant]
     Active Substance: MACITENTAN
     Indication: Pulmonary arterial hypertension
     Dosage: UNK UNK, UNKNOWN
     Route: 065
     Dates: end: 20200116
  25. OPSUMIT [Concomitant]
     Active Substance: MACITENTAN
     Dosage: UNK UNK, UNKNOWN
     Route: 065
     Dates: start: 20200117, end: 20210121
  26. OPSUMIT [Concomitant]
     Active Substance: MACITENTAN
     Dosage: UNK UNK, UNKNOWN
     Route: 065
     Dates: start: 20210122
  27. PROPRANOLOL HYDROCHLORIDE [Concomitant]
     Active Substance: PROPRANOLOL HYDROCHLORIDE
     Indication: Product used for unknown indication
     Dosage: UNK UNK, UNKNOWN
     Route: 065
     Dates: start: 20180501, end: 20200716
  28. PROPRANOLOL HYDROCHLORIDE [Concomitant]
     Active Substance: PROPRANOLOL HYDROCHLORIDE
     Dosage: 33 MG, DAILY
     Route: 065
     Dates: start: 20200717
  29. FUROSEMIDE [Concomitant]
     Active Substance: FUROSEMIDE
     Indication: Postoperative care
     Dosage: UNK UNK, UNKNOWN
     Route: 065
     Dates: start: 20180808, end: 20200521
  30. FUROSEMIDE [Concomitant]
     Active Substance: FUROSEMIDE
     Dosage: UNK UNK, UNKNOWN
     Route: 065
     Dates: start: 20191106, end: 20191114
  31. FUROSEMIDE [Concomitant]
     Active Substance: FUROSEMIDE
     Dosage: UNK UNK, UNKNOWN
     Route: 065
     Dates: start: 20200522
  32. ALDACTONE [Concomitant]
     Active Substance: SPIRONOLACTONE
     Indication: Product used for unknown indication
     Dosage: UNK UNK, UNKNOWN
     Route: 065
     Dates: start: 20180501, end: 20200521
  33. ALDACTONE [Concomitant]
     Active Substance: SPIRONOLACTONE
     Dosage: UNK UNK, UNKNOWN
     Route: 065
     Dates: start: 20200522
  34. WARFARIN POTASSIUM [Concomitant]
     Active Substance: WARFARIN POTASSIUM
     Indication: Product used for unknown indication
     Dosage: UNK UNK, UNKNOWN
     Route: 065
     Dates: start: 20190105, end: 20201125
  35. WARFARIN POTASSIUM [Concomitant]
     Active Substance: WARFARIN POTASSIUM
     Dosage: 0.5 MG, DAILY
     Route: 065
     Dates: start: 20201126, end: 20201129
  36. WARFARIN POTASSIUM [Concomitant]
     Active Substance: WARFARIN POTASSIUM
     Dosage: 0.65 MG, DAILY
     Route: 065
     Dates: start: 20201130, end: 20210617
  37. WARFARIN POTASSIUM [Concomitant]
     Active Substance: WARFARIN POTASSIUM
     Dosage: 0.7 MG
     Route: 065
     Dates: start: 20210618
  38. INCREMIN [CYANOCOBALAMIN;FERRIC PYROPHOSPHATE [Concomitant]
     Indication: Autoimmune haemolytic anaemia
     Dosage: 24 MG, DAILY
     Route: 065
     Dates: end: 20191104
  39. PHENOBAL [PHENOBARBITAL SODIUM] [Concomitant]
     Indication: Sedation
     Dosage: 25 MG, DAILY
     Route: 065
     Dates: start: 20180808
  40. POTASSIUM CHLORIDE [Concomitant]
     Active Substance: POTASSIUM CHLORIDE
     Indication: Hypokalaemia
     Dosage: 0.9 G, DAILY
     Dates: start: 20180808, end: 20190321
  41. HYDROCHLOROTHIAZIDE [Concomitant]
     Active Substance: HYDROCHLOROTHIAZIDE
     Indication: Product used for unknown indication
     Dosage: 3 MG, DAILY
     Route: 065
     Dates: start: 20180817
  42. HYDROCHLOROTHIAZIDE [Concomitant]
     Active Substance: HYDROCHLOROTHIAZIDE
     Dosage: 11 MG, DAILY
     Route: 065
     Dates: start: 20191111, end: 20191119
  43. FAMOTIDINE [Concomitant]
     Active Substance: FAMOTIDINE
     Indication: Gastritis
     Dosage: 5 MG, DAILY
     Route: 065
     Dates: start: 20180918
  44. ZONISAMIDE [Concomitant]
     Active Substance: ZONISAMIDE
     Indication: Epilepsy
     Dosage: 24 MG, DAILY
     Route: 065
     Dates: start: 20180926
  45. LEVETIRACETAM [Concomitant]
     Active Substance: LEVETIRACETAM
     Indication: Epilepsy
     Dosage: 60 MG, DAILY
     Route: 065
     Dates: start: 20180928
  46. MOSAPRIDE CITRATE DIHYDRATE [Concomitant]
     Active Substance: MOSAPRIDE CITRATE DIHYDRATE
     Indication: Gastrooesophageal reflux disease
     Dosage: 2 MG, DAILY
     Route: 065
     Dates: start: 20180928
  47. EPINEPHRINE [Concomitant]
     Active Substance: EPINEPHRINE
     Indication: Postoperative care
     Dosage: 0.029 MG, DAILY
     Route: 065
     Dates: start: 20191105, end: 20191105
  48. DOBUTREX [Concomitant]
     Active Substance: DOBUTAMINE HYDROCHLORIDE
     Indication: Postoperative care
     Dosage: UNK UNK, UNKNOWN
     Route: 065
     Dates: start: 20191105, end: 20191107
  49. MILRINONE [Concomitant]
     Active Substance: MILRINONE
     Indication: Postoperative care
     Dosage: UNK UNK, UNKNOWN
     Route: 065
     Dates: start: 20191105, end: 20191110
  50. HEPARIN-NA [Concomitant]
     Indication: Postoperative care
     Dosage: UNK UNK, UNKNOWN
     Route: 065
     Dates: start: 20191105, end: 20191115

REACTIONS (6)
  - Kawasaki^s disease [Recovering/Resolving]
  - Febrile convulsion [Recovered/Resolved]
  - Hepatic function abnormal [Recovered/Resolved]
  - Pyrexia [Recovering/Resolving]
  - Tachycardia [Recovering/Resolving]
  - Off label use [Unknown]

NARRATIVE: CASE EVENT DATE: 20190418
